FAERS Safety Report 6299142-8 (Version None)
Quarter: 2009Q3

REPORT INFORMATION
  Report Type: 
  Country: None (occurrence: None)
  Receive Date: 20090803
  Receipt Date: 20090721
  Transmission Date: 20100115
  Serious: Yes (Other)
  Sender: FDA-Public Use
  Company Number: 2009AP003022

PATIENT
  Age: 76 Year
  Sex: Male

DRUGS (7)
  1. AMIODARONE HYDROCHLORIDE [Suspect]
     Dosage: 400 MG; TID; PO
     Route: 048
  2. ACETYLSALICYLIC ACID [Concomitant]
  3. ISOSORBIDE DINITRATE [Concomitant]
  4. HYDRALAZINE HCL [Concomitant]
  5. METOPROLOL SUCCINATE [Concomitant]
  6. SIMVASTATIN [Concomitant]
  7. WARFARIN SODIUM [Concomitant]

REACTIONS (15)
  - ABASIA [None]
  - ACTIVATED PARTIAL THROMBOPLASTIN TIME PROLONGED [None]
  - ALANINE AMINOTRANSFERASE INCREASED [None]
  - ASPARTATE AMINOTRANSFERASE INCREASED [None]
  - ATAXIA [None]
  - BALANCE DISORDER [None]
  - BLOOD CREATININE INCREASED [None]
  - BLOOD PRESSURE SYSTOLIC INCREASED [None]
  - BLOOD UREA INCREASED [None]
  - CEREBELLAR SYNDROME [None]
  - FEELING DRUNK [None]
  - INTERNATIONAL NORMALISED RATIO INCREASED [None]
  - NEUROTOXICITY [None]
  - POSITIVE ROMBERGISM [None]
  - PROTHROMBIN TIME PROLONGED [None]
